FAERS Safety Report 8353459-1 (Version None)
Quarter: 2012Q2

REPORT INFORMATION
  Report Type: 
  Country: None (occurrence: None)
  Receive Date: 20120511
  Receipt Date: 20110322
  Transmission Date: 20120825
  Serious: No
  Sender: FDA-Public Use
  Company Number: US-GLAXOSMITHKLINE-A0920426A

PATIENT
  Sex: Female

DRUGS (1)
  1. TYKERB [Suspect]
     Indication: PRODUCT USED FOR UNKNOWN INDICATION
     Dosage: 250MG UNKNOWN
     Route: 065

REACTIONS (13)
  - DECREASED APPETITE [None]
  - PYREXIA [None]
  - EPISTAXIS [None]
  - HOT FLUSH [None]
  - NAIL DISORDER [None]
  - NAUSEA [None]
  - DIARRHOEA [None]
  - DRY MOUTH [None]
  - PAIN [None]
  - FATIGUE [None]
  - NASAL DRYNESS [None]
  - SOMNOLENCE [None]
  - CHILLS [None]
